FAERS Safety Report 16928231 (Version 2)
Quarter: 2020Q3

REPORT INFORMATION
  Report Type: Other
  Country: US (occurrence: US)
  Receive Date: 20191017
  Receipt Date: 20200807
  Transmission Date: 20201102
  Serious: Yes (Other)
  Sender: FDA-Public Use
  Company Number: US-ROCHE-2352228

PATIENT
  Age: 58 Year
  Sex: Female

DRUGS (1)
  1. OCREVUS [Suspect]
     Active Substance: OCRELIZUMAB
     Indication: RELAPSING MULTIPLE SCLEROSIS
     Dosage: DATE OF TREATMENT OF OCRELIZUMAB? 27/DEC/2018, 27/JUN/2019, 27/DEC/2019 AND 29/JUN/2020.
     Route: 065
     Dates: start: 20181211

REACTIONS (5)
  - Fatigue [Not Recovered/Not Resolved]
  - Throat tightness [Recovered/Resolved]
  - Nasal obstruction [Recovered/Resolved]
  - Insomnia [Not Recovered/Not Resolved]
  - Tremor [Not Recovered/Not Resolved]

NARRATIVE: CASE EVENT DATE: 20190626
